FAERS Safety Report 5219261-4 (Version None)
Quarter: 2007Q1

REPORT INFORMATION
  Report Type: 
  Country: None (occurrence: None)
  Receive Date: 20070125
  Receipt Date: 20070118
  Transmission Date: 20070707
  Serious: Yes (Other)
  Sender: FDA-Public Use
  Company Number: 2007UW00635

PATIENT
  Age: 60 Year
  Sex: Male
  Weight: 79.1 kg

DRUGS (5)
  1. RHINOCORT AQUA [Suspect]
     Dosage: EXPIRED
     Route: 045
  2. ALEVE [Suspect]
     Indication: MYALGIA
     Dosage: EXPIRED
     Route: 048
     Dates: start: 20070103
  3. CLARINEX [Suspect]
  4. ACCURETIC [Suspect]
  5. MULTI-VITAMIN [Concomitant]

REACTIONS (8)
  - BURNING SENSATION [None]
  - DIZZINESS [None]
  - HEADACHE [None]
  - HEART RATE INCREASED [None]
  - HYPOTENSION [None]
  - MYALGIA [None]
  - PRURITUS [None]
  - SYNCOPE [None]
